FAERS Safety Report 23379088 (Version 1)
Quarter: 2024Q1

REPORT INFORMATION
  Report Type: Spontaneous
  Country: GR (occurrence: GR)
  Receive Date: 20240108
  Receipt Date: 20240108
  Transmission Date: 20240410
  Serious: Yes (Death)
  Sender: FDA-Public Use
  Company Number: GR-PFIZER INC-202400000793

PATIENT
  Age: 91 Year
  Sex: Male

DRUGS (1)
  1. TAVOR (LORAZEPAM) [Suspect]
     Active Substance: LORAZEPAM
     Dosage: UNK

REACTIONS (5)
  - Aspiration [Fatal]
  - Withdrawal syndrome [Unknown]
  - Muscle spasms [Unknown]
  - Inappropriate schedule of product discontinuation [Unknown]
  - Incorrect product administration duration [Unknown]
